FAERS Safety Report 7936837-1 (Version None)
Quarter: 2011Q4

REPORT INFORMATION
  Report Type: 
  Country: None (occurrence: None)
  Receive Date: 20111123
  Receipt Date: 20111021
  Transmission Date: 20120403
  Serious: Yes (Other)
  Sender: FDA-Public Use
  Company Number: JP-UCBSA-044484

PATIENT
  Sex: Male

DRUGS (3)
  1. KEPPRA [Suspect]
     Indication: EPILEPSY
     Dosage: UNKNOWN DOSE
     Route: 048
  2. PHENOBARBITAL TAB [Concomitant]
  3. CLONAZEPAM [Concomitant]

REACTIONS (3)
  - SOMNOLENCE [None]
  - BLOOD PRESSURE DECREASED [None]
  - BRADYARRHYTHMIA [None]
